FAERS Safety Report 8634235 (Version 2)
Quarter: 2012Q4

REPORT INFORMATION
  Report Type: 
  Country: BR (occurrence: BR)
  Receive Date: 20120626
  Receipt Date: 20121029
  Transmission Date: 20130627
  Serious: Yes (Other)
  Sender: FDA-Public Use
  Company Number: BR-US-EMD SERONO, INC.-7141620

PATIENT
  Age: 48 None
  Sex: Female

DRUGS (2)
  1. REBIF [Suspect]
     Indication: RELAPSING-REMITTING MULTIPLE SCLEROSIS
     Dates: start: 20060701, end: 20120901
  2. COZAC (FLUOXETINE) [Concomitant]
     Indication: PRODUCT USED FOR UNKNOWN INDICATION

REACTIONS (5)
  - Thyroid cancer [Not Recovered/Not Resolved]
  - Tonsillitis [Recovered/Resolved]
  - Immunodeficiency [Not Recovered/Not Resolved]
  - Psoriasis [Recovering/Resolving]
  - Dermatitis [Not Recovered/Not Resolved]
